FAERS Safety Report 25079029 (Version 3)
Quarter: 2025Q2

REPORT INFORMATION
  Report Type: Spontaneous
  Country: AR (occurrence: AR)
  Receive Date: 20250314
  Receipt Date: 20250422
  Transmission Date: 20250716
  Serious: No
  Sender: PFIZER
  Company Number: AR-PFIZER INC-PV202500030193

PATIENT
  Age: 69 Year
  Sex: Female

DRUGS (1)
  1. ENBREL [Suspect]
     Active Substance: ETANERCEPT

REACTIONS (4)
  - Injection site pain [Unknown]
  - Musculoskeletal disorder [Unknown]
  - Device leakage [Unknown]
  - Device mechanical issue [Unknown]

NARRATIVE: CASE EVENT DATE: 20250311
